FAERS Safety Report 5651911-0 (Version None)
Quarter: 2008Q1

REPORT INFORMATION
  Report Type: 
  Country: None (occurrence: None)
  Receive Date: 20080305
  Receipt Date: 20080222
  Transmission Date: 20080703
  Serious: Yes (Other)
  Sender: FDA-Public Use
  Company Number: US-PFIZER INC-2007097975

PATIENT
  Sex: Female
  Weight: 51.3 kg

DRUGS (8)
  1. DILANTIN [Suspect]
     Indication: PETIT MAL EPILEPSY
     Route: 048
  2. DILANTIN [Suspect]
     Indication: CONVULSION
  3. GRAPEFRUIT JUICE [Suspect]
  4. DIAZEPAM [Concomitant]
  5. FUROSEMIDE [Concomitant]
  6. ALL OTHER THERAPEUTIC PRODUCTS [Concomitant]
  7. PREVACID [Concomitant]
  8. DARVOCET [Concomitant]

REACTIONS (8)
  - FATIGUE [None]
  - GRAND MAL CONVULSION [None]
  - HEADACHE [None]
  - MEMORY IMPAIRMENT [None]
  - NIGHTMARE [None]
  - PETIT MAL EPILEPSY [None]
  - RETINAL DISORDER [None]
  - VISION BLURRED [None]
